FAERS Safety Report 10094283 (Version 1)
Quarter: 2014Q2

REPORT INFORMATION
  Report Type: Spontaneous
  Country: US (occurrence: None)
  Receive Date: 20140421
  Receipt Date: 20140421
  Transmission Date: 20141212
  Serious: Yes (Disabling)
  Sender: FDA-Public Use
  Company Number: None

PATIENT
  Age: 45 Year
  Sex: Female
  Weight: 65.77 kg

DRUGS (1)
  1. SAVELLA [Suspect]
     Indication: FIBROMYALGIA
     Dosage: 12.5 TWICE DAILY TAKEN BY MOUTH
     Route: 048

REACTIONS (9)
  - Hot flush [None]
  - Hyperhidrosis [None]
  - Eye pain [None]
  - Headache [None]
  - Nausea [None]
  - Vomiting [None]
  - Chills [None]
  - Pain [None]
  - Abdominal pain [None]
